FAERS Safety Report 22106134 (Version 1)
Quarter: 2023Q1

REPORT INFORMATION
  Report Type: Spontaneous
  Country: US (occurrence: US)
  Receive Date: 20230317
  Receipt Date: 20230317
  Transmission Date: 20230417
  Serious: Yes (Hospitalization, Other)
  Sender: FDA-Public Use
  Company Number: US-SA-2023SA078757

PATIENT
  Age: 61 Year
  Sex: Female
  Weight: 61.2 kg

DRUGS (12)
  1. OXALIPLATIN [Suspect]
     Active Substance: OXALIPLATIN
     Indication: Pancreatic carcinoma metastatic
     Dosage: 150 MG, QOW
     Route: 042
     Dates: start: 20221108, end: 20230214
  2. IRINOTECAN [Suspect]
     Active Substance: IRINOTECAN
     Indication: Pancreatic carcinoma metastatic
     Dosage: 262 MG, QOW
     Route: 042
     Dates: start: 20221108, end: 20230214
  3. FLUOROURACIL [Suspect]
     Active Substance: FLUOROURACIL
     Indication: Pancreatic carcinoma metastatic
     Dosage: 4200 MG, QOW
     Route: 042
     Dates: start: 20221108, end: 20230214
  4. BUDIGALIMAB [Suspect]
     Active Substance: BUDIGALIMAB
     Indication: Pancreatic carcinoma metastatic
     Dosage: 500 MG, Q4W
     Route: 042
     Dates: start: 20221110, end: 20230202
  5. LEUCOVORIN [Suspect]
     Active Substance: LEUCOVORIN
     Indication: Pancreatic carcinoma metastatic
     Dosage: 700 MG, QOW
     Route: 042
     Dates: start: 20221108, end: 20230214
  6. LOPERAMIDE [Concomitant]
     Active Substance: LOPERAMIDE
     Indication: Prophylaxis against diarrhoea
     Dosage: 2 MG, 6ID
     Dates: start: 20221103
  7. ATIVAN [Concomitant]
     Active Substance: LORAZEPAM
  8. ZOFRAN [Concomitant]
     Active Substance: ONDANSETRON HYDROCHLORIDE
     Indication: Prophylaxis of nausea and vomiting
     Dosage: 8 MG, Q8H
     Dates: start: 20221103
  9. COMPAZINE [Concomitant]
     Active Substance: PROCHLORPERAZINE MALEATE
     Indication: Nausea
     Dosage: 10 MG, Q8H
     Dates: start: 20221110
  10. COMPAZINE [Concomitant]
     Active Substance: PROCHLORPERAZINE MALEATE
     Indication: Vomiting
  11. ACRIVASTINE [Concomitant]
     Active Substance: ACRIVASTINE
     Indication: Premedication
     Dosage: 25 MG, TOTAL
     Dates: start: 20221207
  12. PEPCID [Concomitant]
     Active Substance: FAMOTIDINE
     Indication: Premedication
     Dosage: 20 MG, TOTAL
     Dates: start: 20221207

REACTIONS (1)
  - Epiglottitis [Not Recovered/Not Resolved]
